FAERS Safety Report 6413928-8 (Version None)
Quarter: 2009Q4

REPORT INFORMATION
  Report Type: 
  Country: None (occurrence: None)
  Receive Date: 20091026
  Receipt Date: 20091015
  Transmission Date: 20100525
  Serious: No
  Sender: FDA-Public Use
  Company Number: US-JNJFOC-20091005870

PATIENT
  Sex: Female
  Weight: 56.7 kg

DRUGS (8)
  1. DURAGESIC-100 [Suspect]
     Indication: BACK PAIN
     Route: 062
     Dates: start: 20090901, end: 20091014
  2. CELEXA [Concomitant]
     Indication: DEPRESSION
     Route: 048
     Dates: start: 20080101
  3. TRAZODONE [Concomitant]
     Indication: SLEEP DISORDER
     Dates: start: 20080101
  4. BACLOFEN [Concomitant]
     Indication: MYALGIA
     Route: 048
     Dates: start: 20080101
  5. MELOXICAM [Concomitant]
     Indication: ARTHRITIS
     Route: 048
     Dates: start: 20080101
  6. RANITIDINE [Concomitant]
     Indication: GASTRIC DISORDER
     Route: 048
     Dates: start: 20080101
  7. PERCOCET [Concomitant]
     Indication: BREAKTHROUGH PAIN
     Route: 048
  8. ABILIFY [Concomitant]
     Indication: DRUG THERAPY
     Route: 048
     Dates: start: 20080101

REACTIONS (1)
  - DRUG DOSE OMISSION [None]
